FAERS Safety Report 8281893-7 (Version None)
Quarter: 2012Q2

REPORT INFORMATION
  Report Type: 
  Country: None (occurrence: None)
  Receive Date: 20120413
  Receipt Date: 20120403
  Transmission Date: 20120825
  Serious: Yes (Other)
  Sender: FDA-Public Use
  Company Number: PHHY2012AU029194

PATIENT
  Sex: Male

DRUGS (1)
  1. CLOZARIL [Suspect]
     Dosage: UNK UKN, UNK
     Dates: start: 20100101

REACTIONS (7)
  - SYSTOLIC DYSFUNCTION [None]
  - CARDIOMYOPATHY [None]
  - PROTEIN TOTAL DECREASED [None]
  - FREE HAEMOGLOBIN PRESENT [None]
  - BLOOD LACTATE DEHYDROGENASE INCREASED [None]
  - GLOBULINS DECREASED [None]
  - EJECTION FRACTION DECREASED [None]
